FAERS Safety Report 7824881-4 (Version None)
Quarter: 2011Q4

REPORT INFORMATION
  Report Type: 
  Country: None (occurrence: None)
  Receive Date: 20111019
  Receipt Date: 20110311
  Transmission Date: 20120403
  Serious: No
  Sender: FDA-Public Use
  Company Number: US-BRISTOL-MYERS SQUIBB COMPANY-15552631

PATIENT
  Age: 48 Year
  Sex: Female

DRUGS (2)
  1. LIPITOR [Concomitant]
  2. AVALIDE [Suspect]
     Indication: HYPERTENSION
     Dosage: 1 DF:150/12.5MG DOSE INCREASED TO 300/25MG
     Route: 048
     Dates: start: 20040705

REACTIONS (2)
  - HEADACHE [None]
  - HYPERTENSION [None]
